FAERS Safety Report 13824599 (Version 1)
Quarter: 2017Q3

REPORT INFORMATION
  Report Type: Spontaneous
  Country: GB (occurrence: GB)
  Receive Date: 20170802
  Receipt Date: 20170802
  Transmission Date: 20171127
  Serious: Yes (Other)
  Sender: FDA-Public Use
  Company Number: GB-KRKA, D.D., NOVO MESTO-2024058

PATIENT
  Sex: Male

DRUGS (6)
  1. LANSOPRAZOLE GENERIC [Suspect]
     Active Substance: LANSOPRAZOLE
  2. CITALOPRAM [Suspect]
     Active Substance: CITALOPRAM HYDROBROMIDE
  3. DIAZEPAM WORLD (DIAZEPAM) UNKNOWN [Suspect]
     Active Substance: DIAZEPAM
  4. RISPERIDONE GENERICHEALTH [Suspect]
     Active Substance: RISPERIDONE
  5. EPILIM [Suspect]
     Active Substance: VALPROATE SODIUM
  6. ZOPICLONE [Suspect]
     Active Substance: ZOPICLONE

REACTIONS (36)
  - Seizure [Unknown]
  - Confusional state [Unknown]
  - Fall [Unknown]
  - Movement disorder [Unknown]
  - Feeling cold [Unknown]
  - Arthralgia [Unknown]
  - Alopecia [Unknown]
  - Somnolence [Unknown]
  - Restlessness [Unknown]
  - Constipation [Unknown]
  - Cough [Unknown]
  - Fatigue [Unknown]
  - Oedema peripheral [Unknown]
  - Delusion [Unknown]
  - Headache [Unknown]
  - Flatulence [Unknown]
  - Decreased appetite [Unknown]
  - Visual impairment [Unknown]
  - Peripheral swelling [Unknown]
  - Rash [Unknown]
  - Tremor [Unknown]
  - Insomnia [Unknown]
  - Disturbance in attention [Unknown]
  - Drug interaction [Unknown]
  - Urticaria [Unknown]
  - Epilepsy [Unknown]
  - Syncope [Unknown]
  - Incontinence [Unknown]
  - Hypoaesthesia [Unknown]
  - Pain [Unknown]
  - Nasal congestion [Unknown]
  - Dysphonia [Unknown]
  - Speech disorder [Unknown]
  - Dyspnoea [Unknown]
  - Muscular weakness [Unknown]
  - Irritability [Unknown]
